FAERS Safety Report 4304393-5 (Version None)
Quarter: 2004Q1

REPORT INFORMATION
  Report Type: 
  Country: None (occurrence: None)
  Receive Date: 20040224
  Receipt Date: 20040211
  Transmission Date: 20041129
  Serious: Yes (Hospitalization)
  Sender: FDA-Public Use
  Company Number: 04P-163-0249929-00

PATIENT
  Age: 61 Year
  Sex: Female
  Weight: 102.0593 kg

DRUGS (8)
  1. HUMIRA [Suspect]
     Indication: RHEUMATOID ARTHRITIS
     Dosage: 40 MG, 1 IN 2 WK, SUBCUTANEOUS
     Route: 058
     Dates: start: 20031001, end: 20040107
  2. METHOTREXATE SODIUM [Concomitant]
  3. PREDNISONE [Concomitant]
  4. OXYBUTYNIN [Concomitant]
  5. WARFARIN SODIUM [Concomitant]
  6. TRIAMTERENE [Concomitant]
  7. METOPROLOL SUCCINATE [Concomitant]
  8. LOSARTAN POTASSIUM [Concomitant]

REACTIONS (3)
  - DYSPNOEA [None]
  - FEELING ABNORMAL [None]
  - URINARY TRACT INFECTION [None]
